FAERS Safety Report 8188509-9 (Version None)
Quarter: 2012Q1

REPORT INFORMATION
  Report Type: 
  Country: None (occurrence: None)
  Receive Date: 20120306
  Receipt Date: 20120301
  Transmission Date: 20120608
  Serious: Yes (Other)
  Sender: FDA-Public Use
  Company Number: PHHY2012MX018700

PATIENT
  Sex: Female

DRUGS (4)
  1. DIOVAN [Suspect]
     Indication: HYPERTENSION
     Dosage: 1 DF (160 MG) DAILY
     Dates: start: 20120201
  2. METFORMIN HCL [Concomitant]
     Dosage: UNK UKN, UNK
  3. TENORMIN [Concomitant]
     Indication: HYPERTENSION
     Dosage: 0.5 DFDAILY
     Dates: start: 20120201
  4. DIOVAN [Suspect]
     Dosage: 0.5 DF (160 MG) DAILY

REACTIONS (6)
  - FEELING ABNORMAL [None]
  - BLOOD GLUCOSE ABNORMAL [None]
  - ARRHYTHMIA [None]
  - HEART RATE DECREASED [None]
  - BLOOD PRESSURE FLUCTUATION [None]
  - WRONG TECHNIQUE IN DRUG USAGE PROCESS [None]
